FAERS Safety Report 4656690-1 (Version None)
Quarter: 2005Q2

REPORT INFORMATION
  Report Type: 
  Country: None (occurrence: None)
  Receive Date: 20050506
  Receipt Date: 20050427
  Transmission Date: 20051028
  Serious: Yes (Death, Hospitalization, Disabling)
  Sender: FDA-Public Use
  Company Number: 2005048285

PATIENT
  Age: 73 Year
  Sex: Male

DRUGS (6)
  1. IRINOTECAN HCL [Suspect]
     Indication: RECTAL CANCER
     Dosage: 100 MG, INTRAVENOUS
     Route: 042
     Dates: start: 20050202, end: 20050202
  2. IRINOTECAN HCL [Suspect]
     Indication: RECTAL CANCER
     Dosage: 100 MG, INTRAVENOUS
     Route: 042
     Dates: start: 20050209, end: 20050209
  3. ZANTAC 150 [Suspect]
     Indication: RECTAL CANCER
     Dosage: 100 MG, INTRAVENOUS
     Route: 042
     Dates: start: 20050202, end: 20050202
  4. ZANTAC 150 [Suspect]
     Indication: RECTAL CANCER
     Dosage: 100 MG, INTRAVENOUS
     Route: 042
     Dates: start: 20050209, end: 20050209
  5. FLUOROURACIL [Concomitant]
  6. CALCIUM LEVOFOLINATE (CALCIUM LEVOFOLINATE) [Concomitant]

REACTIONS (11)
  - ANOREXIA [None]
  - BLOOD PRESSURE DECREASED [None]
  - CONDITION AGGRAVATED [None]
  - DISSEMINATED INTRAVASCULAR COAGULATION [None]
  - ESCHERICHIA INFECTION [None]
  - MALAISE [None]
  - METASTASIS [None]
  - NEOPLASM PROGRESSION [None]
  - PANCYTOPENIA [None]
  - SEPSIS [None]
  - STREPTOCOCCAL INFECTION [None]
